FAERS Safety Report 7450574-1 (Version None)
Quarter: 2011Q2

REPORT INFORMATION
  Report Type: 
  Country: None (occurrence: None)
  Receive Date: 20110422
  Receipt Date: 20110408
  Transmission Date: 20111010
  Serious: Yes (Hospitalization, Other)
  Sender: FDA-Public Use
  Company Number: 029519

PATIENT
  Sex: Male

DRUGS (4)
  1. XYZAL [Suspect]
     Indication: SEASONAL ALLERGY
     Dosage: (5 MG QD ORAL), (ORAL)
     Route: 048
     Dates: start: 20110401
  2. XYZAL [Suspect]
     Indication: SEASONAL ALLERGY
     Dosage: (5 MG QD ORAL), (ORAL)
     Route: 048
     Dates: start: 20110307, end: 20110308
  3. CELESTAMINE TAB [Concomitant]
  4. ZEPELIN [Concomitant]

REACTIONS (2)
  - FALL [None]
  - HYPOKALAEMIA [None]
